FAERS Safety Report 5525400-8 (Version None)
Quarter: 2007Q4

REPORT INFORMATION
  Report Type: 
  Country: None (occurrence: None)
  Receive Date: 20071120
  Receipt Date: 20071105
  Transmission Date: 20080405
  Serious: Yes (Hospitalization)
  Sender: FDA-Public Use
  Company Number: 2007S1009998

PATIENT
  Age: 81 Year
  Sex: Male

DRUGS (11)
  1. AMLODIPINE BESYLATE [Suspect]
     Indication: HYPERTENSION
     Dosage: 2.5 MG; AS NEEDED; ORAL; 2.5 MG; DAILY; ORAL
     Route: 048
     Dates: start: 20070615, end: 20070701
  2. AMLODIPINE BESYLATE [Suspect]
     Indication: HYPERTENSION
     Dosage: 2.5 MG; AS NEEDED; ORAL; 2.5 MG; DAILY; ORAL
     Route: 048
     Dates: start: 20070701, end: 20070908
  3. ATENOLOL [Concomitant]
  4. HYDROCHLOROTHIAZIDE [Concomitant]
  5. CENTRUM SILVER [Concomitant]
  6. ZINC [Concomitant]
  7. VITAMIN B6 [Concomitant]
  8. VITAMIN E [Concomitant]
  9. COQ10 [Concomitant]
  10. CALTRATE PLUS [Concomitant]
  11. MAGNESIUM SULFATE [Concomitant]

REACTIONS (18)
  - BLOOD CALCIUM DECREASED [None]
  - BLOOD POTASSIUM DECREASED [None]
  - BLOOD PRESSURE INADEQUATELY CONTROLLED [None]
  - CONSTIPATION [None]
  - DIPLOPIA [None]
  - DIZZINESS [None]
  - FATIGUE [None]
  - HEADACHE [None]
  - HEART RATE INCREASED [None]
  - HEART RATE IRREGULAR [None]
  - INSOMNIA [None]
  - MYALGIA [None]
  - OVERDOSE [None]
  - PARAESTHESIA [None]
  - STRESS [None]
  - SYNCOPE [None]
  - TRANSIENT ISCHAEMIC ATTACK [None]
  - VASCULITIS [None]
